FAERS Safety Report 4641659-3 (Version None)
Quarter: 2005Q2

REPORT INFORMATION
  Report Type: 
  Country: None (occurrence: None)
  Receive Date: 20050421
  Receipt Date: 20050411
  Transmission Date: 20051028
  Serious: Yes (Other)
  Sender: FDA-Public Use
  Company Number: 200511503BCC

PATIENT
  Age: 75 Year
  Sex: Male
  Weight: 90.7194 kg

DRUGS (3)
  1. PHILLIPS LAXATIVE DIETARY SUPPLEMENT (LAXATIVES) [Suspect]
     Indication: CONSTIPATION
     Dosage: 1500 MG, ONCE, ORAL
     Route: 048
     Dates: start: 20050407
  2. PHILLIPS LAXATIVE DIETARY SUPPLEMENT (LAXATIVES) [Suspect]
     Indication: CONSTIPATION
     Dosage: 1500 MG, ONCE, ORAL
     Route: 048
     Dates: start: 20050409
  3. ZETRIL [Concomitant]

REACTIONS (1)
  - HAEMATOCHEZIA [None]
